FAERS Safety Report 25190697 (Version 1)
Quarter: 2025Q2

REPORT INFORMATION
  Report Type: Spontaneous
  Country: GB (occurrence: GB)
  Receive Date: 20250411
  Receipt Date: 20250411
  Transmission Date: 20250716
  Serious: Yes (Other)
  Sender: GE HEALTHCARE
  Company Number: None

PATIENT
  Age: 32 Year
  Sex: Male

DRUGS (1)
  1. OMNIPAQUE [Suspect]
     Active Substance: IOHEXOL
     Indication: Diagnostic procedure
     Route: 065
     Dates: start: 20250403, end: 20250403

REACTIONS (7)
  - Neurogenic shock [Recovered/Resolved]
  - Loss of consciousness [Recovered/Resolved]
  - Circulatory collapse [Recovered/Resolved]
  - Skin discolouration [Recovered/Resolved]
  - Mydriasis [Recovered/Resolved]
  - Wheezing [Recovered/Resolved]
  - Muscle tightness [Recovered/Resolved]
